FAERS Safety Report 4962724-7 (Version None)
Quarter: 2006Q2

REPORT INFORMATION
  Report Type: 
  Country: None (occurrence: None)
  Receive Date: 20060404
  Receipt Date: 20051207
  Transmission Date: 20061013
  Serious: Yes (Hospitalization, Other)
  Sender: FDA-Public Use
  Company Number: US-MERCK-0512USA01521

PATIENT
  Age: 52 Year
  Sex: Female
  Weight: 84 kg

DRUGS (17)
  1. VIOXX [Suspect]
     Indication: ARTHRITIS
     Route: 048
     Dates: start: 19990101, end: 20031015
  2. VIOXX [Suspect]
     Indication: INFLAMMATION
     Route: 048
     Dates: start: 19990101, end: 20031015
  3. PROMETHAZINE [Concomitant]
     Route: 065
  4. NOVOLIN [Concomitant]
     Route: 065
  5. SYNTHROID [Concomitant]
     Route: 065
  6. [THERAPY UNSPECIFIED] [Concomitant]
     Route: 065
  7. BACTRIM [Concomitant]
     Route: 065
  8. DARVOCET [Concomitant]
     Route: 065
  9. LORA TAB [Concomitant]
     Route: 065
  10. FLEXERIL [Concomitant]
     Route: 065
  11. PHENERGAN TABLETS/SUPPOSITORIES [Concomitant]
     Route: 065
  12. LEVAQUIN [Concomitant]
     Route: 065
  13. TOPROL-XL [Concomitant]
     Indication: HYPERTENSION
     Route: 065
     Dates: start: 20031001
  14. TIAZAC [Concomitant]
     Indication: HYPERTENSION
     Route: 065
     Dates: start: 19980101, end: 20031001
  15. LASIX [Concomitant]
     Indication: OEDEMA
     Route: 065
     Dates: start: 20010101, end: 20020101
  16. ACETAMINOPHEN [Concomitant]
     Route: 065
  17. IBUPROFEN [Concomitant]
     Route: 065

REACTIONS (9)
  - ACUTE MYOCARDIAL INFARCTION [None]
  - ARTHROPATHY [None]
  - BREAST DISORDER [None]
  - BREAST MASS [None]
  - CARDIAC DISORDER [None]
  - CORONARY ARTERY DISEASE [None]
  - GASTRITIS [None]
  - HYPERCHOLESTEROLAEMIA [None]
  - TEMPOROMANDIBULAR JOINT SYNDROME [None]
